FAERS Safety Report 24363417 (Version 4)
Quarter: 2024Q4

REPORT INFORMATION
  Report Type: Spontaneous
  Country: US (occurrence: US)
  Receive Date: 20240925
  Receipt Date: 20241219
  Transmission Date: 20250115
  Serious: Yes (Hospitalization, Other)
  Sender: SANOFI AVENTIS
  Company Number: US-SA-2024SA275709

PATIENT
  Age: 42 Year
  Sex: Male

DRUGS (4)
  1. ELOCTATE [Suspect]
     Active Substance: EFMOROCTOCOG ALFA
     Indication: Factor VIII deficiency
     Dosage: 5000 UNITS (4500-5500) SLOW IV PUSH TWICE A WEEK ON MONDAY AND THURSDAY FOR PROPHYLAXIS
     Route: 042
     Dates: start: 201805
  2. ELOCTATE [Suspect]
     Active Substance: EFMOROCTOCOG ALFA
     Indication: Factor VIII deficiency
     Dosage: 5000 UNITS (4500-5500) SLOW IV PUSH TWICE A WEEK ON MONDAY AND THURSDAY FOR PROPHYLAXIS
     Route: 042
     Dates: start: 201805
  3. ELOCTATE [Suspect]
     Active Substance: EFMOROCTOCOG ALFA
     Dosage: 5000 UNITS (4500-5500) SLOW IV PUSH EVERY 24 HOURS X2 AS NEEDED FOR BREAKTHROUGH BLEEDING
     Route: 042
     Dates: start: 201805
  4. ELOCTATE [Suspect]
     Active Substance: EFMOROCTOCOG ALFA
     Dosage: 5000 UNITS (4500-5500) SLOW IV PUSH EVERY 24 HOURS X2 AS NEEDED FOR BREAKTHROUGH BLEEDING
     Route: 042
     Dates: start: 201805

REACTIONS (3)
  - Cerebral haemorrhage [Unknown]
  - Haemorrhage [Unknown]
  - Road traffic accident [Unknown]

NARRATIVE: CASE EVENT DATE: 20240809
